FAERS Safety Report 6254902-4 (Version None)
Quarter: 2009Q3

REPORT INFORMATION
  Report Type: 
  Country: None (occurrence: None)
  Receive Date: 20090702
  Receipt Date: 20090630
  Transmission Date: 20100115
  Serious: Yes (Hospitalization)
  Sender: FDA-Public Use
  Company Number: IT-BRISTOL-MYERS SQUIBB COMPANY-14618656

PATIENT
  Age: 69 Year
  Sex: Male
  Weight: 65 kg

DRUGS (6)
  1. CETUXIMAB [Suspect]
     Indication: HEAD AND NECK CANCER
     Route: 042
     Dates: start: 20090423
  2. CISPLATIN [Suspect]
     Indication: HEAD AND NECK CANCER
     Route: 042
     Dates: start: 20090428
  3. DOCETAXEL [Suspect]
     Indication: HEAD AND NECK CANCER
     Route: 042
     Dates: start: 20090427
  4. FLUOROURACIL [Suspect]
     Indication: HEAD AND NECK CANCER
     Route: 042
     Dates: start: 20090428
  5. OMNIC [Concomitant]
     Indication: BENIGN PROSTATIC HYPERPLASIA
  6. PROCAPTAN [Concomitant]
     Indication: HYPERTENSION
     Dates: start: 20090427

REACTIONS (8)
  - ASTHENIA [None]
  - DEHYDRATION [None]
  - DIARRHOEA [None]
  - HYPONATRAEMIA [None]
  - MUCOSAL INFLAMMATION [None]
  - NAUSEA [None]
  - NEUTROPENIA [None]
  - STAPHYLOCOCCAL INFECTION [None]
